FAERS Safety Report 4666485-0 (Version None)
Quarter: 2005Q2

REPORT INFORMATION
  Report Type: 
  Country: None (occurrence: None)
  Receive Date: 20050518
  Receipt Date: 20050512
  Transmission Date: 20051028
  Serious: Yes (Hospitalization)
  Sender: FDA-Public Use
  Company Number: SUSI-2005-00396

PATIENT
  Age: 21 Year
  Sex: Male
  Weight: 65.8 kg

DRUGS (3)
  1. ADDERALL XR 10 [Suspect]
     Indication: ATTENTION DEFICIT/HYPERACTIVITY DISORDER
     Dosage: 30 MG, ORAL
     Route: 048
  2. LEXAPRO [Concomitant]
  3. TRAZODONE HCL [Concomitant]

REACTIONS (7)
  - DEMENTIA [None]
  - DRUG ABUSER [None]
  - INSOMNIA [None]
  - MANIA [None]
  - OVERDOSE [None]
  - PARANOIA [None]
  - WEIGHT DECREASED [None]
